FAERS Safety Report 13092821 (Version 1)
Quarter: 2017Q1

REPORT INFORMATION
  Report Type: Spontaneous
  Country: US (occurrence: US)
  Receive Date: 20170105
  Receipt Date: 20170105
  Transmission Date: 20170428
  Serious: Yes (Other)
  Sender: FDA-Public Use
  Company Number: None

PATIENT
  Age: 21 Year
  Sex: Male
  Weight: 67.5 kg

DRUGS (1)
  1. MIRTAZEPINE [Suspect]
     Active Substance: MIRTAZAPINE
     Indication: GENERALISED ANXIETY DISORDER
     Route: 048
     Dates: start: 20161222, end: 20161228

REACTIONS (3)
  - Hallucination [None]
  - Psychotic disorder [None]
  - Delusion [None]

NARRATIVE: CASE EVENT DATE: 20161229
